FAERS Safety Report 5070430-6 (Version None)
Quarter: 2006Q3

REPORT INFORMATION
  Report Type: 
  Country: None (occurrence: None)
  Receive Date: 20060714
  Receipt Date: 20060417
  Transmission Date: 20061208
  Serious: No
  Sender: FDA-Public Use
  Company Number: 2006SP001711

PATIENT
  Age: 83 Year
  Sex: Female
  Weight: 82.5547 kg

DRUGS (3)
  1. LUNESTA [Suspect]
     Indication: INSOMNIA
     Dosage: 2 MG;1X;ORAL
     Route: 048
     Dates: start: 20060413, end: 20060413
  2. METAMUCIL [Concomitant]
  3. DARVOCET [Concomitant]

REACTIONS (1)
  - DYSGEUSIA [None]
